FAERS Safety Report 5046233-5 (Version None)
Quarter: 2006Q3

REPORT INFORMATION
  Report Type: 
  Country: None (occurrence: None)
  Receive Date: 20060710
  Receipt Date: 20060703
  Transmission Date: 20061208
  Serious: Yes (Life-Threatening, Hospitalization)
  Sender: FDA-Public Use
  Company Number: FR-BRISTOL-MYERS SQUIBB COMPANY-13432299

PATIENT
  Age: 79 Year
  Sex: Male

DRUGS (3)
  1. COUMADIN [Suspect]
     Indication: ATRIAL FIBRILLATION
     Route: 048
     Dates: end: 20060612
  2. CIFLOX [Interacting]
     Indication: GASTROENTERITIS
     Route: 042
     Dates: start: 20060609, end: 20060610
  3. CIFLOX [Interacting]
     Route: 048
     Dates: start: 20060611, end: 20060614

REACTIONS (8)
  - ANAEMIA [None]
  - DIVERTICULUM INTESTINAL [None]
  - DRUG INTERACTION [None]
  - GASTROENTERITIS [None]
  - PROTHROMBIN LEVEL DECREASED [None]
  - RECTAL HAEMORRHAGE [None]
  - RENAL FAILURE [None]
  - SHOCK [None]
